FAERS Safety Report 17663838 (Version 1)
Quarter: 2020Q2

REPORT INFORMATION
  Report Type: Spontaneous
  Country: GB (occurrence: GB)
  Receive Date: 20200414
  Receipt Date: 20200414
  Transmission Date: 20200713
  Serious: Yes (Hospitalization)
  Sender: FDA-Public Use
  Company Number: GB-SUN PHARMACEUTICAL INDUSTRIES LTD-2020R1-243066

PATIENT
  Sex: Female
  Weight: .7 kg

DRUGS (2)
  1. CALCIUM FOLINAT [Suspect]
     Active Substance: LEUCOVORIN CALCIUM
     Indication: CHORIOCARCINOMA
     Dosage: UNK
     Route: 064
  2. METHOTREXATE. [Suspect]
     Active Substance: METHOTREXATE
     Indication: CHORIOCARCINOMA
     Dosage: UNK
     Route: 064

REACTIONS (3)
  - Deafness [Unknown]
  - Premature baby [Unknown]
  - Foetal exposure during pregnancy [Unknown]
